FAERS Safety Report 8310617 (Version 2)
Quarter: 2013Q1

REPORT INFORMATION
  Report Type: Spontaneous
  Country: US (occurrence: US)
  Receive Date: 20111223
  Receipt Date: 20130218
  Transmission Date: 20140127
  Serious: Yes (Other)
  Sender: FDA-Public Use
  Company Number: US-ROCHE-1021218

PATIENT
  Sex: Male
  Weight: 74.91 kg

DRUGS (2)
  1. ACCUTANE [Suspect]
     Indication: ACNE
     Route: 048
     Dates: start: 19900219, end: 19900525
  2. ACCUTANE [Suspect]
     Route: 048
     Dates: start: 19911129, end: 19920430

REACTIONS (9)
  - Inflammatory bowel disease [Unknown]
  - Rectal cancer [Unknown]
  - Intestinal obstruction [Unknown]
  - Intestinal haemorrhage [Unknown]
  - Large intestine polyp [Unknown]
  - Depression [Unknown]
  - Suicidal ideation [Unknown]
  - Injury [Unknown]
  - Osteoarthritis [Unknown]
